FAERS Safety Report 10284933 (Version 1)
Quarter: 2014Q3

REPORT INFORMATION
  Report Type: Spontaneous
  Country: US (occurrence: US)
  Receive Date: 20140708
  Receipt Date: 20140708
  Transmission Date: 20150326
  Serious: Yes (Other)
  Sender: FDA-Public Use
  Company Number: US-ABBVIE-14P-163-1257053-00

PATIENT
  Sex: Male
  Weight: 72.64 kg

DRUGS (3)
  1. SYNTHROID [Suspect]
     Active Substance: LEVOTHYROXINE SODIUM
     Indication: HYPOTHYROIDISM
     Route: 048
     Dates: start: 2011
  2. ATENOLOL. [Concomitant]
     Active Substance: ATENOLOL
     Indication: HYPERTENSION
     Dates: end: 2013
  3. ATENOLOL. [Concomitant]
     Active Substance: ATENOLOL
     Dosage: INCREASED DOSE
     Dates: start: 2013

REACTIONS (9)
  - Blood pressure increased [Not Recovered/Not Resolved]
  - Tachycardia [Not Recovered/Not Resolved]
  - Thyroid neoplasm [Recovered/Resolved]
  - Cataract [Recovered/Resolved]
  - Heart rate increased [Not Recovered/Not Resolved]
  - Arrhythmia [Not Recovered/Not Resolved]
  - Atrial tachycardia [Unknown]
  - Cataract [Recovered/Resolved]
  - Thyroid neoplasm [Unknown]

NARRATIVE: CASE EVENT DATE: 2011
